FAERS Safety Report 5852331-6 (Version None)
Quarter: 2008Q3

REPORT INFORMATION
  Report Type: 
  Country: None (occurrence: None)
  Receive Date: 20080821
  Receipt Date: 20080819
  Transmission Date: 20090109
  Serious: Yes (Other)
  Sender: FDA-Public Use
  Company Number: PHHY2008HU18387

PATIENT
  Sex: Male
  Weight: 230 kg

DRUGS (1)
  1. TEGRETOL [Suspect]
     Indication: AGGRESSION
     Dosage: 2 X 200 MG
     Route: 048

REACTIONS (1)
  - WEIGHT INCREASED [None]
